FAERS Safety Report 25196007 (Version 2)
Quarter: 2025Q2

REPORT INFORMATION
  Report Type: Report from Study
  Country: US (occurrence: US)
  Receive Date: 20250415
  Receipt Date: 20250608
  Transmission Date: 20250716
  Serious: Yes (Other)
  Sender: ABBVIE
  Company Number: US-ABBVIE-6224701

PATIENT
  Age: 66 Year
  Sex: Female

DRUGS (4)
  1. HUMIRA [Suspect]
     Active Substance: ADALIMUMAB
     Indication: Psoriasis
     Dosage: FORM STRENGTH: 40 MG, DURATION TEXT: 9 OR 10 YEARS
     Route: 058
     Dates: start: 2015
  2. FENTANYL [Suspect]
     Active Substance: FENTANYL
     Indication: Back pain
     Route: 065
     Dates: end: 2025
  3. FENTANYL [Suspect]
     Active Substance: FENTANYL
     Indication: Back pain
     Route: 065
     Dates: start: 202502
  4. FENTANYL [Suspect]
     Active Substance: FENTANYL
     Indication: Back pain
     Route: 065
     Dates: start: 2025

REACTIONS (10)
  - Brain neoplasm [Not Recovered/Not Resolved]
  - Fall [Recovered/Resolved]
  - Ankle fracture [Recovered/Resolved]
  - Aphasia [Unknown]
  - Vision blurred [Not Recovered/Not Resolved]
  - Eye contusion [Recovered/Resolved]
  - Spinal osteoarthritis [Unknown]
  - Ligament rupture [Unknown]
  - Malaise [Unknown]
  - Concussion [Not Recovered/Not Resolved]

NARRATIVE: CASE EVENT DATE: 20250201
